FAERS Safety Report 8445911-5 (Version None)
Quarter: 2012Q2

REPORT INFORMATION
  Report Type: 
  Country: None (occurrence: None)
  Receive Date: 20120618
  Receipt Date: 20120608
  Transmission Date: 20120825
  Serious: Yes (Disabling)
  Sender: FDA-Public Use
  Company Number: SE-ABBOTT-12P-150-0905257-00

PATIENT
  Sex: Male

DRUGS (2)
  1. CLARITHROMYCIN [Suspect]
     Indication: SINUSITIS
     Dates: start: 20100101, end: 20120101
  2. CLARITHROMYCIN [Suspect]
     Dates: start: 20100101, end: 20100101

REACTIONS (3)
  - DYSGEUSIA [None]
  - AGEUSIA [None]
  - HYPOGEUSIA [None]
